FAERS Safety Report 5580429-9 (Version None)
Quarter: 2008Q1

REPORT INFORMATION
  Report Type: 
  Country: None (occurrence: None)
  Receive Date: 20080103
  Receipt Date: 20071221
  Transmission Date: 20080703
  Serious: Yes (Hospitalization)
  Sender: FDA-Public Use
  Company Number: NO-ELI_LILLY_AND_COMPANY-NO200710005446

PATIENT
  Age: 51 Year
  Sex: Male

DRUGS (2)
  1. CIALIS [Suspect]
     Dosage: 10 MG, ONCE A MONTH OR OCCASSIONALLY
     Route: 048
  2. CIALIS [Suspect]
     Dosage: ALMOST HALF OF 10MG, ONCE A MONTH OR OCCASSIONALLY
     Route: 048

REACTIONS (27)
  - ARTHRALGIA [None]
  - ASTHENIA [None]
  - BACK PAIN [None]
  - CHILLS [None]
  - COLD SWEAT [None]
  - CONFUSIONAL STATE [None]
  - COUGH [None]
  - DIZZINESS [None]
  - EYE PRURITUS [None]
  - EYELID OEDEMA [None]
  - EYELIDS PRURITUS [None]
  - FEELING ABNORMAL [None]
  - FEELING COLD [None]
  - FLUSHING [None]
  - HEADACHE [None]
  - HYPOAESTHESIA [None]
  - HYPOTENSION [None]
  - LUNG ABSCESS [None]
  - MOTION SICKNESS [None]
  - NASAL CONGESTION [None]
  - NECK PAIN [None]
  - PAIN [None]
  - PALLOR [None]
  - PHOTOPHOBIA [None]
  - PRESYNCOPE [None]
  - PRURITUS [None]
  - PYREXIA [None]
